FAERS Safety Report 14420096 (Version 1)
Quarter: 2018Q1

REPORT INFORMATION
  Report Type: Spontaneous
  Country: US (occurrence: US)
  Receive Date: 20180122
  Receipt Date: 20180122
  Transmission Date: 20180509
  Serious: No
  Sender: FDA-Public Use
  Company Number: US-ROCHE-1866272

PATIENT
  Sex: Female

DRUGS (1)
  1. RITUXAN [Suspect]
     Active Substance: RITUXIMAB
     Indication: B-CELL LYMPHOMA
     Route: 065

REACTIONS (5)
  - Arthropod bite [Unknown]
  - Abdominal discomfort [Unknown]
  - Sinus congestion [Unknown]
  - Lyme disease [Unknown]
  - Malaise [Unknown]
